FAERS Safety Report 11914524 (Version 4)
Quarter: 2016Q2

REPORT INFORMATION
  Report Type: Spontaneous
  Country: GB (occurrence: GB)
  Receive Date: 20160113
  Receipt Date: 20160506
  Transmission Date: 20160815
  Serious: Yes (Other)
  Sender: FDA-Public Use
  Company Number: GB-JNJFOC-20160102327

PATIENT
  Sex: Female

DRUGS (1)
  1. SIMPONI [Suspect]
     Active Substance: GOLIMUMAB
     Indication: PRODUCT USED FOR UNKNOWN INDICATION
     Route: 058

REACTIONS (5)
  - Intervertebral disc protrusion [Recovering/Resolving]
  - Cerebrovascular accident [Recovering/Resolving]
  - Pruritus [Recovered/Resolved]
  - Urinary tract disorder [Recovered/Resolved]
  - Influenza like illness [Recovered/Resolved]
